FAERS Safety Report 6444307-5 (Version None)
Quarter: 2009Q4

REPORT INFORMATION
  Report Type: 
  Country: None (occurrence: None)
  Receive Date: 20091118
  Receipt Date: 20091113
  Transmission Date: 20100525
  Serious: Yes (Death, Other)
  Sender: FDA-Public Use
  Company Number: PHHY2009JP45843

PATIENT
  Sex: Male
  Weight: 43 kg

DRUGS (11)
  1. ICL670A ICL+DISTAB [Suspect]
     Indication: IRON OVERLOAD
     Dosage: 875 MG/DAILY
     Route: 048
     Dates: start: 20090917, end: 20091010
  2. ICL670A ICL+DISTAB [Suspect]
     Indication: MYELODYSPLASTIC SYNDROME
  3. ASPIRIN [Concomitant]
     Dosage: 100 MG, UNK
     Route: 048
     Dates: start: 20081006, end: 20091010
  4. DIGOSIN [Concomitant]
     Dosage: UNK
     Route: 048
     Dates: start: 20081009, end: 20091010
  5. ZYLORIC [Concomitant]
     Indication: RENAL FAILURE CHRONIC
     Dosage: 50 MG, UNK
     Route: 048
     Dates: start: 20080714, end: 20091010
  6. TAKEPRON [Concomitant]
     Dosage: 15 MG, UNK
     Route: 048
     Dates: start: 20080206, end: 20091010
  7. VASOLAN [Concomitant]
     Dosage: 120 MG, UNK
     Route: 048
     Dates: start: 20081015, end: 20091010
  8. CALCIUM CARBONATE [Concomitant]
     Indication: RENAL FAILURE CHRONIC
     Dosage: 3.0 G, UNK
     Route: 048
     Dates: start: 20080714, end: 20091010
  9. DAIO-KANZO-TO [Concomitant]
     Dosage: 7.5 G, UNK
     Route: 048
     Dates: start: 20090624, end: 20091010
  10. ISCOTIN [Concomitant]
     Dosage: 100 MG, UNK
     Route: 048
     Dates: start: 20091002, end: 20091010
  11. PYRIDOXAL PHOSPHATE [Concomitant]
     Dosage: 30 MG, UNK
     Route: 048
     Dates: start: 20091002, end: 20091010

REACTIONS (13)
  - ACUTE RESPIRATORY FAILURE [None]
  - ALANINE AMINOTRANSFERASE INCREASED [None]
  - ASPARTATE AMINOTRANSFERASE INCREASED [None]
  - BLOOD ALKALINE PHOSPHATASE INCREASED [None]
  - BLOOD BILIRUBIN INCREASED [None]
  - GAMMA-GLUTAMYLTRANSFERASE INCREASED [None]
  - HAEMATOCRIT DECREASED [None]
  - HAEMOGLOBIN DECREASED [None]
  - HEPATIC FUNCTION ABNORMAL [None]
  - HYPOGLYCAEMIA [None]
  - PLATELET COUNT DECREASED [None]
  - SERUM FERRITIN INCREASED [None]
  - VOMITING [None]
